FAERS Safety Report 24220657 (Version 3)
Quarter: 2025Q3

REPORT INFORMATION
  Report Type: Spontaneous
  Country: AU (occurrence: AU)
  Receive Date: 20240818
  Receipt Date: 20250901
  Transmission Date: 20251021
  Serious: Yes (Death, Hospitalization, Other)
  Sender: CIPLA
  Company Number: AU-CIPLA LTD.-2024AU08735

PATIENT

DRUGS (21)
  1. PREGABALIN [Suspect]
     Active Substance: PREGABALIN
     Indication: Product used for unknown indication
     Route: 065
  2. AGALSIDASE BETA [Suspect]
     Active Substance: AGALSIDASE BETA
     Indication: Fabry^s disease
     Route: 065
     Dates: start: 201611
  3. AGALSIDASE BETA [Suspect]
     Active Substance: AGALSIDASE BETA
     Route: 065
     Dates: start: 202301
  4. AGALSIDASE BETA [Suspect]
     Active Substance: AGALSIDASE BETA
     Route: 042
     Dates: start: 202404
  5. AGALSIDASE BETA [Suspect]
     Active Substance: AGALSIDASE BETA
     Route: 042
     Dates: start: 20240115, end: 20240313
  6. VALPROATE SODIUM [Suspect]
     Active Substance: VALPROATE SODIUM
     Indication: Seizure
     Route: 065
  7. VALPROATE SODIUM [Suspect]
     Active Substance: VALPROATE SODIUM
     Indication: Myoclonus
     Route: 065
     Dates: start: 2024, end: 2024
  8. OZEMPIC [Concomitant]
     Active Substance: SEMAGLUTIDE
     Indication: Product used for unknown indication
     Route: 065
  9. ATORVASTATIN [Concomitant]
     Active Substance: ATORVASTATIN
     Indication: Product used for unknown indication
     Dosage: 20 MILLIGRAM, QD (1 DAY)
     Route: 065
  10. CALCIUM [Concomitant]
     Active Substance: CALCIUM
     Indication: Product used for unknown indication
     Route: 065
  11. FUROSEMIDE [Concomitant]
     Active Substance: FUROSEMIDE
     Indication: Product used for unknown indication
     Dosage: 40 MILLIGRAM, BID (12 HRS)
     Route: 065
  12. IRON [Concomitant]
     Active Substance: IRON
     Indication: Product used for unknown indication
     Route: 042
  13. POLYETHYLENE GLYCOLS [Concomitant]
     Active Substance: POLYETHYLENE GLYCOLS
     Indication: Product used for unknown indication
     Dosage: 1 DOSE 1 DAY, (QD)
     Route: 065
     Dates: start: 202403
  14. MELATONIN [Concomitant]
     Active Substance: MELATONIN
     Indication: Product used for unknown indication
     Route: 065
     Dates: start: 202406
  15. ACETAMINOPHEN [Concomitant]
     Active Substance: ACETAMINOPHEN
     Indication: Product used for unknown indication
     Route: 065
  16. PERINDOPRIL [Concomitant]
     Active Substance: PERINDOPRIL
     Indication: Product used for unknown indication
     Dosage: 1 DOSAGE FORM, QD (1 DOSE UNSPECIFIED)
     Route: 065
  17. PERINDOPRIL [Concomitant]
     Active Substance: PERINDOPRIL
     Dosage: 0.5 MILLIGRAM, QD
     Route: 065
  18. PERINDOPRIL [Concomitant]
     Active Substance: PERINDOPRIL
     Dosage: 250 MILLIGRAM, BID
     Route: 065
  19. SEROTONIN [Concomitant]
     Active Substance: SEROTONIN
     Indication: Product used for unknown indication
     Route: 065
  20. TAPENTADOL [Concomitant]
     Active Substance: TAPENTADOL
     Indication: Product used for unknown indication
     Route: 065
  21. TAPENTADOL [Concomitant]
     Active Substance: TAPENTADOL
     Route: 065

REACTIONS (54)
  - Cerebral ischaemia [Fatal]
  - Brain herniation [Fatal]
  - Brain oedema [Fatal]
  - Gastrointestinal ischaemia [Fatal]
  - Hypoxia [Fatal]
  - Generalised tonic-clonic seizure [Unknown]
  - COVID-19 [Recovering/Resolving]
  - Tonic posturing [Unknown]
  - Neuropathy peripheral [Not Recovered/Not Resolved]
  - Anal incontinence [Unknown]
  - Blepharospasm [Not Recovered/Not Resolved]
  - Angiokeratoma [Unknown]
  - Brain death [Unknown]
  - Condition aggravated [Unknown]
  - Decreased appetite [Not Recovered/Not Resolved]
  - Eating disorder [Not Recovered/Not Resolved]
  - Feeling cold [Unknown]
  - Vein disorder [Not Recovered/Not Resolved]
  - Hyperhidrosis [Not Recovered/Not Resolved]
  - Livedo reticularis [Unknown]
  - Hypothyroidism [Recovered/Resolved]
  - Hypovolaemia [Unknown]
  - Nocturia [Unknown]
  - Micturition urgency [Unknown]
  - Perforation [Unknown]
  - Pupil fixed [Unknown]
  - Renal colic [Unknown]
  - Rhinorrhoea [Recovered/Resolved]
  - Seizure [Not Recovered/Not Resolved]
  - Vertebrobasilar dolichoectasia [Unknown]
  - Loss of consciousness [Unknown]
  - Muscular weakness [Unknown]
  - Abdominal pain [Unknown]
  - Pain in extremity [Unknown]
  - Status epilepticus [Unknown]
  - Sleep disorder due to a general medical condition [Not Recovered/Not Resolved]
  - Weight decreased [Not Recovered/Not Resolved]
  - Nasal congestion [Not Recovered/Not Resolved]
  - Abdominal distension [Unknown]
  - Coma [Not Recovered/Not Resolved]
  - Diarrhoea [Not Recovered/Not Resolved]
  - Dizziness postural [Not Recovered/Not Resolved]
  - Dysarthria [Unknown]
  - Fatigue [Recovered/Resolved]
  - Feeling abnormal [Not Recovered/Not Resolved]
  - Hypotension [Unknown]
  - Malaise [Not Recovered/Not Resolved]
  - Myoclonus [Not Recovered/Not Resolved]
  - Nasopharyngitis [Recovered/Resolved]
  - Nausea [Not Recovered/Not Resolved]
  - Presyncope [Unknown]
  - Pain [Not Recovered/Not Resolved]
  - Tremor [Not Recovered/Not Resolved]
  - Vomiting [Not Recovered/Not Resolved]

NARRATIVE: CASE EVENT DATE: 20180801
